FAERS Safety Report 24678918 (Version 1)
Quarter: 2024Q4

REPORT INFORMATION
  Report Type: Spontaneous
  Country: US (occurrence: US)
  Receive Date: 20241129
  Receipt Date: 20241129
  Transmission Date: 20250115
  Serious: Yes (Other)
  Sender: DR REDDYS
  Company Number: None

PATIENT
  Age: 33 Year
  Sex: Female

DRUGS (8)
  1. CITALOPRAM [Suspect]
     Active Substance: CITALOPRAM
     Indication: Major depression
  2. CITALOPRAM [Suspect]
     Active Substance: CITALOPRAM
  3. VENLAFAXINE [Suspect]
     Active Substance: VENLAFAXINE HYDROCHLORIDE
     Indication: Major depression
  4. LAMOTRIGINE [Suspect]
     Active Substance: LAMOTRIGINE
     Indication: Major depression
  5. LAMOTRIGINE [Suspect]
     Active Substance: LAMOTRIGINE
  6. BUPROPION [Suspect]
     Active Substance: BUPROPION
     Indication: Major depression
  7. DULOXETINE [Suspect]
     Active Substance: DULOXETINE
     Indication: Major depression
  8. LITHIUM [Concomitant]
     Active Substance: LITHIUM
     Indication: Major depression

REACTIONS (8)
  - Condition aggravated [Unknown]
  - Exposure during pregnancy [Unknown]
  - Drug ineffective [Unknown]
  - Anxiety [Unknown]
  - Activation syndrome [Unknown]
  - Insomnia [Unknown]
  - Product use in unapproved indication [Unknown]
  - Cognitive disorder [Unknown]
